FAERS Safety Report 10765359 (Version 1)
Quarter: 2015Q1

REPORT INFORMATION
  Report Type: Spontaneous
  Country: US (occurrence: None)
  Receive Date: 20150204
  Receipt Date: 20150204
  Transmission Date: 20150721
  Serious: No
  Sender: FDA-Public Use
  Company Number: None

PATIENT
  Age: 54 Year
  Sex: Male

DRUGS (1)
  1. STIVARGA [Suspect]
     Active Substance: REGORAFENIB
     Indication: GASTROINTESTINAL DISORDER
     Dosage: 3 TABLETS, DAILY FOR 21 DAYS, OFF 7, ORAL
     Route: 048
     Dates: start: 20150108, end: 20150117

REACTIONS (7)
  - Dry skin [None]
  - Asthenia [None]
  - Oropharyngeal pain [None]
  - Diarrhoea [None]
  - Fatigue [None]
  - Somnolence [None]
  - Aphonia [None]

NARRATIVE: CASE EVENT DATE: 20150117
